FAERS Safety Report 6819451-0 (Version None)
Quarter: 2010Q3

REPORT INFORMATION
  Report Type: 
  Country: None (occurrence: None)
  Receive Date: 20100707
  Receipt Date: 20100626
  Transmission Date: 20110219
  Serious: Yes (Other)
  Sender: FDA-Public Use
  Company Number: US-PFIZER INC-2010080113

PATIENT
  Sex: Female
  Weight: 57.596 kg

DRUGS (2)
  1. CHANTIX [Suspect]
     Indication: SMOKING CESSATION THERAPY
     Dosage: 0.5 MG, 1X/DAY
     Route: 048
     Dates: start: 20100622
  2. XANAX [Concomitant]
     Indication: SLEEP DISORDER
     Dosage: 1 MG, 1X/DAY
     Route: 048

REACTIONS (1)
  - PARAESTHESIA [None]
